FAERS Safety Report 5083257-6 (Version None)
Quarter: 2006Q3

REPORT INFORMATION
  Report Type: 
  Country: None (occurrence: None)
  Receive Date: 20060818
  Receipt Date: 20060804
  Transmission Date: 20061208
  Serious: Yes (Hospitalization)
  Sender: FDA-Public Use
  Company Number: US-AMGEN-STX189124

PATIENT
  Sex: Female

DRUGS (3)
  1. ENBREL [Suspect]
     Indication: PSORIATIC ARTHROPATHY
     Route: 058
     Dates: start: 20030310, end: 20060619
  2. ENBREL [Suspect]
     Indication: PSORIASIS
  3. METHOTREXATE [Concomitant]
     Dates: start: 20020101

REACTIONS (10)
  - ASTHENIA [None]
  - DISORIENTATION [None]
  - EAR CONGESTION [None]
  - EPISTAXIS [None]
  - HAEMOPTYSIS [None]
  - LETHARGY [None]
  - MOUTH ULCERATION [None]
  - RED BLOOD CELL COUNT DECREASED [None]
  - SINUS CONGESTION [None]
  - THROMBOSIS [None]
